FAERS Safety Report 4884779-0 (Version None)
Quarter: 2005Q4

REPORT INFORMATION
  Report Type: 
  Country: None (occurrence: None)
  Receive Date: 20051201
  Receipt Date: 20050919
  Transmission Date: 20060501
  Serious: No
  Sender: FDA-Public Use
  Company Number: 2005PV002257

PATIENT
  Age: 68 Year
  Sex: Male
  Weight: 110.6777 kg

DRUGS (11)
  1. BYETTA [Suspect]
     Indication: DIABETES MELLITUS NON-INSULIN-DEPENDENT
     Dosage: 5 MCG; BID; SC
     Route: 058
     Dates: start: 20050912
  2. NIASPAN [Concomitant]
  3. ZOCOR [Concomitant]
  4. FLOMAX [Concomitant]
  5. TOPROLOL [Concomitant]
  6. DIURETIC [Concomitant]
  7. AVAPRO [Concomitant]
  8. ALLOPURINOL [Concomitant]
  9. PRANDIN [Concomitant]
  10. GLUCOPHAGE ^BRISTOL SQUIBB^ [Concomitant]
  11. ASPIRIN [Concomitant]

REACTIONS (5)
  - BLOOD GLUCOSE DECREASED [None]
  - BLOOD GLUCOSE INCREASED [None]
  - EARLY SATIETY [None]
  - HYPERHIDROSIS [None]
  - INCREASED APPETITE [None]
